FAERS Safety Report 9957587 (Version 1)
Quarter: 2014Q1

REPORT INFORMATION
  Report Type: Report from Study
  Country: US (occurrence: US)
  Receive Date: 20140304
  Receipt Date: 20140304
  Transmission Date: 20141002
  Serious: No
  Sender: FDA-Public Use
  Company Number: US-ABBVIE-13P-163-1094084-00

PATIENT
  Age: 61 Year
  Sex: Male

DRUGS (6)
  1. HUMIRA [Suspect]
     Indication: RHEUMATOID ARTHRITIS
     Dates: start: 20120925, end: 201305
  2. ASPIRIN [Concomitant]
     Indication: TRANSIENT ISCHAEMIC ATTACK
  3. METHOTREXATE [Concomitant]
     Indication: RHEUMATOID ARTHRITIS
     Dates: end: 20130514
  4. TRILIPIX [Concomitant]
     Indication: BLOOD CHOLESTEROL
     Dates: end: 201305
  5. NIASPAN ER [Concomitant]
     Indication: BLOOD CHOLESTEROL
     Dates: end: 201305
  6. FOLIC ACID [Concomitant]
     Indication: VITAMIN SUPPLEMENTATION
     Dates: end: 201305

REACTIONS (5)
  - Fatigue [Recovering/Resolving]
  - Erythema [Recovering/Resolving]
  - Dyspnoea [Unknown]
  - Renal impairment [Unknown]
  - Myalgia [Recovering/Resolving]
